FAERS Safety Report 19502024 (Version 1)
Quarter: 2021Q3

REPORT INFORMATION
  Report Type: Report from Study
  Country: DE (occurrence: DE)
  Receive Date: 20210707
  Receipt Date: 20210707
  Transmission Date: 20211014
  Serious: Yes (Life-Threatening, Hospitalization)
  Sender: FDA-Public Use
  Company Number: NVSC2020DE307788

PATIENT
  Age: 66 Year
  Sex: Male
  Weight: 76.8 kg

DRUGS (63)
  1. OXALIPLATIN. [Suspect]
     Active Substance: OXALIPLATIN
     Indication: B-CELL LYMPHOMA
     Dosage: 251 MG, ONCE/SINGLE
     Route: 042
     Dates: start: 20201113
  2. PANTOPRAZOL [Concomitant]
     Active Substance: PANTOPRAZOLE SODIUM
     Indication: PROPHYLAXIS
     Dosage: UNK
     Route: 065
     Dates: start: 20201028, end: 20201111
  3. JONOSTERIL [Concomitant]
     Dosage: UNK
     Route: 065
     Dates: start: 20201115, end: 20201116
  4. FUROSEMID [Concomitant]
     Active Substance: FUROSEMIDE
     Dosage: UNK
     Route: 065
     Dates: start: 20201114, end: 20201115
  5. EMEND [Concomitant]
     Active Substance: APREPITANT
     Indication: PROPHYLAXIS OF NAUSEA AND VOMITING
     Dosage: UNK
     Route: 065
     Dates: start: 20201111, end: 20201111
  6. EMEND [Concomitant]
     Active Substance: APREPITANT
     Dosage: UNK
     Route: 065
     Dates: start: 20201113, end: 20201113
  7. DOXAZOSIN [Concomitant]
     Active Substance: DOXAZOSIN MESYLATE
     Indication: HYPERTENSION
     Dosage: UNK
     Route: 065
     Dates: start: 20201119, end: 20201202
  8. BENDAMUSTINE [Concomitant]
     Active Substance: BENDAMUSTINE
     Indication: SALVAGE THERAPY
     Dosage: UNK
     Route: 065
     Dates: start: 20201229, end: 20201230
  9. PANTOPRAZOL [Concomitant]
     Active Substance: PANTOPRAZOLE SODIUM
     Dosage: UNK
     Route: 065
     Dates: start: 20201118, end: 20201119
  10. BUSCOPAN [Concomitant]
     Active Substance: BUTYLSCOPOLAMINE BROMIDE
     Indication: ABDOMINAL PAIN
     Dosage: UNK
     Route: 065
     Dates: start: 20201111, end: 20201111
  11. ONDANSETRON [Concomitant]
     Active Substance: ONDANSETRON
     Indication: PROPHYLAXIS
     Dosage: UNK
     Route: 065
     Dates: start: 20201113, end: 20201114
  12. ONDANSETRON [Concomitant]
     Active Substance: ONDANSETRON
     Indication: PROPHYLAXIS OF NAUSEA AND VOMITING
     Dosage: UNK
     Route: 065
     Dates: start: 20201115, end: 20201115
  13. DEXASINE [Concomitant]
     Active Substance: DEXAMETHASONE SODIUM PHOSPHATE
     Indication: EYE DISORDER PROPHYLAXIS
     Dosage: UNK
     Route: 065
     Dates: start: 20201114, end: 20201114
  14. ALLOPURINOL. [Concomitant]
     Active Substance: ALLOPURINOL
     Indication: PROPHYLAXIS
     Dosage: UNK
     Route: 065
     Dates: start: 20201113, end: 20201114
  15. SOLU DECORTIN H [Concomitant]
     Active Substance: PREDNISOLONE SODIUM SUCCINATE
     Dosage: UNK
     Route: 065
     Dates: start: 20201116, end: 20201116
  16. CIMETIDIN [Concomitant]
     Indication: PREMEDICATION
     Dosage: UNK
     Route: 065
     Dates: start: 20201111, end: 20201111
  17. MANNITOL. [Concomitant]
     Active Substance: MANNITOL
     Indication: PREMEDICATION
     Dosage: UNK
     Route: 065
     Dates: start: 20201113, end: 20201113
  18. AMLODIPIN [Concomitant]
     Active Substance: AMLODIPINE BESYLATE
     Dosage: UNK
     Route: 065
     Dates: start: 20201121, end: 20201202
  19. JONOSTERIL [Concomitant]
     Dosage: UNK
     Route: 065
     Dates: start: 20201114, end: 20201114
  20. EMEND [Concomitant]
     Active Substance: APREPITANT
     Dosage: UNK
     Route: 065
     Dates: start: 20201114, end: 20201114
  21. SOLU DECORTIN H [Concomitant]
     Active Substance: PREDNISOLONE SODIUM SUCCINATE
     Indication: PREMEDICATION
     Dosage: UNK
     Route: 065
     Dates: start: 20201110, end: 20201111
  22. CARVEDILOL. [Concomitant]
     Active Substance: CARVEDILOL
     Dosage: UNK
     Route: 065
     Dates: start: 20201119, end: 20201210
  23. OMEPRAZOL [Concomitant]
     Active Substance: OMEPRAZOLE
     Indication: GENERAL PHYSICAL CONDITION
     Dosage: UNK
     Route: 065
     Dates: start: 20201026
  24. DIPIDOLOR [Concomitant]
     Active Substance: PIRITRAMIDE
     Indication: PROPHYLAXIS
     Dosage: UNK
     Route: 065
     Dates: start: 20201105, end: 20201105
  25. NEULASTA [Concomitant]
     Active Substance: PEGFILGRASTIM
     Indication: PROPHYLAXIS
     Dosage: UNK
     Route: 065
     Dates: start: 20201116, end: 20201116
  26. FUROSEMID [Concomitant]
     Active Substance: FUROSEMIDE
     Dosage: UNK
     Route: 065
     Dates: start: 20201120, end: 20201121
  27. COTRIM [Concomitant]
     Active Substance: SULFAMETHOXAZOLE\TRIMETHOPRIM
     Indication: INFECTION PROPHYLAXIS
     Dosage: UNK
     Route: 065
     Dates: start: 20201116, end: 20201118
  28. RASBURICASE [Concomitant]
     Active Substance: RASBURICASE
     Indication: PROPHYLAXIS
     Dosage: UNK
     Route: 065
     Dates: start: 20201114, end: 20201114
  29. METOPROLOL. [Concomitant]
     Active Substance: METOPROLOL
     Indication: TACHYARRHYTHMIA
     Dosage: UNK
     Route: 065
     Dates: start: 20201116, end: 20201116
  30. LANICOR [Concomitant]
     Active Substance: DIGOXIN
     Indication: TACHYARRHYTHMIA
     Dosage: UNK
     Route: 065
     Dates: start: 20201116, end: 20201116
  31. BISOPROLOL [Concomitant]
     Active Substance: BISOPROLOL
     Indication: HYPERTENSION
     Dosage: UNK
     Route: 065
     Dates: start: 20201117, end: 20201117
  32. PARACODIN [Concomitant]
     Indication: COUGH
     Dosage: UNK
     Route: 065
     Dates: start: 20201110, end: 20201111
  33. FUROSEMID [Concomitant]
     Active Substance: FUROSEMIDE
     Indication: ANURIA
     Dosage: UNK
     Route: 065
     Dates: start: 20201112, end: 20201112
  34. ONDANSETRON [Concomitant]
     Active Substance: ONDANSETRON
     Dosage: UNK
     Route: 065
     Dates: start: 20201116, end: 20201116
  35. KALIUM [Concomitant]
     Active Substance: POTASSIUM CHLORIDE
     Indication: HYPOKALAEMIA
     Dosage: UNK
     Route: 065
     Dates: start: 20201028, end: 20201106
  36. POLATUZUMAB VEDOTIN. [Concomitant]
     Active Substance: POLATUZUMAB VEDOTIN
     Indication: SALVAGE THERAPY
     Dosage: UNK
     Route: 065
     Dates: start: 20201229, end: 20201229
  37. MORPHIN [Concomitant]
     Active Substance: MORPHINE
     Indication: PAIN
     Dosage: UNK
     Route: 065
     Dates: start: 20201118, end: 20201118
  38. RAMIPRIL. [Concomitant]
     Active Substance: RAMIPRIL
     Indication: HYPERTENSION
     Dosage: UNK
     Route: 065
     Dates: start: 20201031, end: 20201106
  39. JONOSTERIL [Concomitant]
     Dosage: UNK
     Route: 065
     Dates: start: 20201112, end: 20201112
  40. PARACETAMOL [Concomitant]
     Active Substance: ACETAMINOPHEN
     Indication: PREMEDICATION
     Dosage: UNK
     Route: 065
     Dates: start: 20201111, end: 20201111
  41. FUROSEMID [Concomitant]
     Active Substance: FUROSEMIDE
     Indication: DYSPNOEA
     Dosage: UNK
     Route: 065
     Dates: start: 20201110, end: 20201110
  42. FENISTIL [Concomitant]
     Active Substance: DIMETHINDENE
     Indication: DYSPNOEA
     Dosage: UNK
     Route: 065
     Dates: start: 20201116, end: 20201116
  43. TRAMAL [Concomitant]
     Active Substance: TRAMADOL
     Dosage: UNK
     Route: 065
     Dates: start: 20201106, end: 20201106
  44. TAZOBAC [Concomitant]
     Active Substance: PIPERACILLIN SODIUM\TAZOBACTAM SODIUM
     Indication: PROPHYLAXIS
     Dosage: UNK
     Route: 065
     Dates: start: 20201112, end: 20201112
  45. TORASEMID [Concomitant]
     Active Substance: TORSEMIDE
     Indication: HYPERTENSION
     Dosage: UNK
     Route: 065
     Dates: start: 20201030, end: 20201110
  46. PANTOPRAZOL [Concomitant]
     Active Substance: PANTOPRAZOLE SODIUM
     Dosage: UNK
     Route: 065
     Dates: start: 20201113, end: 20201116
  47. PANTOPRAZOL [Concomitant]
     Active Substance: PANTOPRAZOLE SODIUM
     Dosage: UNK
     Route: 065
     Dates: start: 20201120, end: 20201202
  48. JONOSTERIL [Concomitant]
     Dosage: UNK
     Route: 065
     Dates: start: 20201117, end: 20201119
  49. JONOSTERIL [Concomitant]
     Dosage: UNK
     Route: 065
     Dates: start: 20201120, end: 20201121
  50. SOLU DECORTIN H [Concomitant]
     Active Substance: PREDNISOLONE SODIUM SUCCINATE
     Dosage: UNK
     Route: 065
     Dates: start: 20201111, end: 20201111
  51. TRAMAL [Concomitant]
     Active Substance: TRAMADOL
     Indication: PAIN
     Dosage: UNK
     Route: 065
     Dates: start: 20201105, end: 20201105
  52. AMLODIPIN [Concomitant]
     Active Substance: AMLODIPINE BESYLATE
     Dosage: UNK
     Route: 065
     Dates: start: 20201120, end: 20201120
  53. CYTARABINE. [Suspect]
     Active Substance: CYTARABINE
     Indication: B-CELL LYMPHOMA
     Dosage: 7720 MG, BID
     Route: 042
     Dates: start: 20201114
  54. DEXAMETHASONE. [Suspect]
     Active Substance: DEXAMETHASONE
     Indication: B-CELL LYMPHOMA
     Dosage: 120 MG, QD
     Route: 048
     Dates: start: 20201113
  55. RITUXIMAB. [Suspect]
     Active Substance: RITUXIMAB
     Indication: B-CELL LYMPHOMA
     Dosage: 723.75 MG, ONCE/SINGLE
     Route: 042
     Dates: start: 20201111
  56. JONOSTERIL [Concomitant]
     Indication: PROPHYLAXIS
     Dosage: UNK
     Route: 065
     Dates: start: 20201105, end: 20201105
  57. JONOSTERIL [Concomitant]
     Dosage: UNK
     Route: 065
     Dates: start: 20201110, end: 20201111
  58. NOVALGIN [Concomitant]
     Indication: ABDOMINAL PAIN
     Dosage: UNK
     Route: 065
     Dates: start: 20201111, end: 20201111
  59. FUROSEMID [Concomitant]
     Active Substance: FUROSEMIDE
     Dosage: UNK
     Route: 065
     Dates: start: 20201116, end: 20201116
  60. FENISTIL [Concomitant]
     Active Substance: DIMETHINDENE
     Indication: PREMEDICATION
     Dosage: UNK
     Route: 065
     Dates: start: 20201111, end: 20201111
  61. KALIUM [Concomitant]
     Active Substance: POTASSIUM CHLORIDE
     Dosage: UNK
     Route: 065
     Dates: start: 20201107, end: 20201107
  62. AMLODIPIN [Concomitant]
     Active Substance: AMLODIPINE BESYLATE
     Indication: HYPERTENSION
     Dosage: UNK
     Route: 065
     Dates: start: 20201118, end: 20201119
  63. CARVEDILOL. [Concomitant]
     Active Substance: CARVEDILOL
     Indication: TACHYARRHYTHMIA
     Dosage: UNK
     Route: 065
     Dates: start: 20201118, end: 20201118

REACTIONS (2)
  - Tumour lysis syndrome [Recovered/Resolved]
  - Renal failure [Recovered/Resolved]

NARRATIVE: CASE EVENT DATE: 20201111
